FAERS Safety Report 4873140-0 (Version None)
Quarter: 2006Q1

REPORT INFORMATION
  Report Type: 
  Country: None (occurrence: None)
  Receive Date: 20060105
  Receipt Date: 20051129
  Transmission Date: 20060701
  Serious: Yes (Hospitalization)
  Sender: FDA-Public Use
  Company Number: JP-JPN-A20052917

PATIENT
  Age: 23 Year
  Sex: Male

DRUGS (6)
  1. ZOVIRAX [Suspect]
     Indication: VARICELLA
     Route: 042
     Dates: start: 20051124, end: 20051130
  2. CEFAZOLIN [Concomitant]
     Indication: PNEUMONIA
     Dosage: 2G PER DAY
     Route: 042
     Dates: start: 20051127, end: 20051130
  3. LOXONIN [Concomitant]
     Dosage: 2U PER DAY
     Route: 048
     Dates: start: 20051124, end: 20051128
  4. LACTEC-G [Concomitant]
     Indication: DEHYDRATION
     Dosage: 500ML PER DAY
     Route: 042
     Dates: start: 20051124, end: 20051130
  5. SOLITA-T NO 3 [Concomitant]
     Indication: DEHYDRATION
     Dosage: 1000ML PER DAY
     Route: 042
     Dates: start: 20051124, end: 20051130
  6. DEPAS [Concomitant]
     Indication: INSOMNIA
     Dosage: 1TAB PER DAY
     Route: 048
     Dates: start: 20051129, end: 20051129

REACTIONS (5)
  - DYSURIA [None]
  - MICTURITION DISORDER [None]
  - PYREXIA [None]
  - URINARY INCONTINENCE [None]
  - URINARY RETENTION [None]
